FAERS Safety Report 13737721 (Version 1)
Quarter: 2017Q3

REPORT INFORMATION
  Report Type: Spontaneous
  Country: US (occurrence: US)
  Receive Date: 20170710
  Receipt Date: 20170710
  Transmission Date: 20171127
  Serious: Yes (Other)
  Sender: FDA-Public Use
  Company Number: US-SAOL THERAPEUTICS-2016SAO00652

PATIENT
  Age: 26 Year
  Sex: Female
  Weight: 65.76 kg

DRUGS (16)
  1. ZYRTEC [Concomitant]
     Active Substance: CETIRIZINE HYDROCHLORIDE
     Dosage: UNK
  2. PROVENTIL [Concomitant]
     Active Substance: ALBUTEROL
     Dosage: UNK, AS NEEDED
  3. COMPOUNDED BACLOFEN [Suspect]
     Active Substance: BACLOFEN
     Indication: MUSCLE SPASTICITY
     Dosage: 3.1 ?G, \DAY
     Route: 037
     Dates: start: 20160902
  4. VESICARE [Concomitant]
     Active Substance: SOLIFENACIN SUCCINATE
  5. IBUPROFEN. [Concomitant]
     Active Substance: IBUPROFEN
     Dosage: UNK, AS NEEDED
  6. ZANAFLEX [Concomitant]
     Active Substance: TIZANIDINE HYDROCHLORIDE
     Dosage: UNK, AS NEEDED
  7. SINGULAIR [Concomitant]
     Active Substance: MONTELUKAST SODIUM
  8. BACLOFEN. [Concomitant]
     Active Substance: BACLOFEN
     Route: 048
  9. CYMBALTA [Concomitant]
     Active Substance: DULOXETINE HYDROCHLORIDE
  10. HYDROCODONE [Concomitant]
     Active Substance: HYDROCODONE
     Dosage: UNK, AS NEEDED
  11. NEXIUM [Concomitant]
     Active Substance: ESOMEPRAZOLE MAGNESIUM
  12. COMPOUNDED BACLOFEN [Suspect]
     Active Substance: BACLOFEN
     Indication: CEREBRAL PALSY
     Dosage: 90 ?G, \DAY
     Route: 037
     Dates: start: 2016, end: 2016
  13. ^STOOL SOFTENER^ [Concomitant]
     Dosage: UNK, AS NEEDED
  14. LISINOPRIL. [Concomitant]
     Active Substance: LISINOPRIL
  15. SQ NEXPLANON [Concomitant]
  16. OSTEO BIFLEX [Concomitant]
     Active Substance: CHONDROITIN SULFATE A\GLUCOSAMINE

REACTIONS (3)
  - Device failure [Recovered/Resolved]
  - Drug withdrawal syndrome [Recovered/Resolved]
  - Device alarm issue [Recovered/Resolved]

NARRATIVE: CASE EVENT DATE: 20160901
